FAERS Safety Report 9951770 (Version 2)
Quarter: 2014Q1

REPORT INFORMATION
  Report Type: Report from Study
  Country: US (occurrence: US)
  Receive Date: 20140304
  Receipt Date: 20140304
  Transmission Date: 20141002
  Serious: No
  Sender: FDA-Public Use
  Company Number: US-ABBVIE-13P-163-1051953-00

PATIENT
  Age: 59 Year
  Sex: Female

DRUGS (4)
  1. HUMIRA [Suspect]
     Indication: CROHN^S DISEASE
     Route: 058
     Dates: start: 201301
  2. HUMIRA [Suspect]
     Route: 058
     Dates: start: 20130305
  3. HUMIRA [Suspect]
     Route: 058
     Dates: start: 20130219, end: 20130219
  4. HUMIRA [Suspect]
     Route: 058
     Dates: start: 20130305

REACTIONS (14)
  - Crying [Recovering/Resolving]
  - Injection site pruritus [Recovered/Resolved]
  - Vomiting [Not Recovered/Not Resolved]
  - Injection site rash [Recovered/Resolved]
  - Injection site pain [Unknown]
  - Injection site pain [Unknown]
  - Gastrointestinal infection [Unknown]
  - Injection site mass [Recovered/Resolved with Sequelae]
  - Injection site erythema [Not Recovered/Not Resolved]
  - Injection site pain [Not Recovered/Not Resolved]
  - Injection site erythema [Recovering/Resolving]
  - Injection site pruritus [Recovering/Resolving]
  - Injection site swelling [Recovering/Resolving]
  - Injection site warmth [Recovering/Resolving]
